FAERS Safety Report 25435376 (Version 1)
Quarter: 2025Q2

REPORT INFORMATION
  Report Type: Spontaneous
  Country: US (occurrence: None)
  Receive Date: 20250607
  Receipt Date: 20250607
  Transmission Date: 20250717
  Serious: Yes (Life-Threatening, Disabling, Other)
  Sender: FDA-CTU
  Company Number: None

PATIENT
  Age: 54 Year
  Sex: Male
  Weight: 78.02 kg

DRUGS (14)
  1. SEROQUEL [Suspect]
     Active Substance: QUETIAPINE FUMARATE
     Indication: Bipolar disorder
     Dosage: FREQUENCY : AT BEDTIME;?
     Route: 004
     Dates: start: 20060601, end: 20210801
  2. Carbamazepine IR 132.5 mg tablets (265 mg per day) Take 1 tablet in a. [Concomitant]
  3. Levothyroxine 100 MCG ? Take 1 tablet in a.m. [Concomitant]
  4. Fexofenadine (360 mg daily) 180 mg Tablets ?Take Twice Daily [Concomitant]
  5. Paxil 10 mg ? Take1 tablet with breakfast [Concomitant]
  6. Clonidine 0.1 mg ? Take 1 tablet at bedtime for sleep / anxiety [Concomitant]
  7. Vitamin D3 2000 IU Supplement once daily per Dr. Jeff Cote, MD PCP [Concomitant]
  8. Azelastine HCL Nasal Solution ? 2 sprays each nostril twice daily AS N [Concomitant]
  9. SODIUM CHLORIDE [Concomitant]
     Active Substance: SODIUM CHLORIDE
  10. Benadryl 25mg tablets Take 1- 2 tablets before [Concomitant]
  11. Salsalate 750 mg ? Take Twice Daily As Needed for AS Flare Ups [Concomitant]
  12. Diclofenac Gel on affected joint per label instructions [Concomitant]
  13. Fish Oil 1000mg tabs Take 2 gel capsules in the a.m. Take 1 gel capsul [Concomitant]
  14. Vitamin pill 1 tablet daily 3.)Vitamin C 1000 mg daily 4.)Magnesium G [Concomitant]

REACTIONS (21)
  - Metabolic syndrome [None]
  - Behaviour disorder [None]
  - Blood pressure increased [None]
  - Anxiety [None]
  - Hyponatraemia [None]
  - Withdrawal syndrome [None]
  - Impaired gastric emptying [None]
  - Autonomic nervous system imbalance [None]
  - Insomnia [None]
  - Exercise tolerance decreased [None]
  - Weight decreased [None]
  - Histamine intolerance [None]
  - Post-traumatic stress disorder [None]
  - Bundle branch block left [None]
  - Type 2 diabetes mellitus [None]
  - Blood immunoglobulin E increased [None]
  - Sleep deficit [None]
  - Cardiac disorder [None]
  - Renal disorder [None]
  - Cognitive disorder [None]
  - Hypersensitivity [None]

NARRATIVE: CASE EVENT DATE: 20180401
